FAERS Safety Report 24198018 (Version 2)
Quarter: 2024Q3

REPORT INFORMATION
  Report Type: Spontaneous
  Country: US (occurrence: US)
  Receive Date: 20240812
  Receipt Date: 20240905
  Transmission Date: 20241016
  Serious: Yes (Other)
  Sender: NOVARTIS
  Company Number: US-002147023-NVSC2024US160810

PATIENT
  Age: 20 Year
  Sex: Female
  Weight: 100.5 kg

DRUGS (2)
  1. COSENTYX [Suspect]
     Active Substance: SECUKINUMAB
     Indication: Psoriatic arthropathy
     Dosage: 150 MG, QMO
     Route: 058
     Dates: start: 202405, end: 202407
  2. COSENTYX [Suspect]
     Active Substance: SECUKINUMAB
     Dosage: UNK (0,1,2,3,4 AND EVERY 4 WEEKS)
     Route: 058
     Dates: start: 20240515, end: 20240715

REACTIONS (3)
  - Diarrhoea haemorrhagic [Not Recovered/Not Resolved]
  - Haematochezia [Unknown]
  - Abdominal pain [Unknown]

NARRATIVE: CASE EVENT DATE: 20240601
